FAERS Safety Report 19177998 (Version 1)
Quarter: 2021Q2

REPORT INFORMATION
  Report Type: Spontaneous
  Country: HR (occurrence: HR)
  Receive Date: 20210426
  Receipt Date: 20210426
  Transmission Date: 20210717
  Serious: Yes (Hospitalization, Other)
  Sender: FDA-Public Use
  Company Number: HR-JNJFOC-20210444887

PATIENT
  Age: 79 Year
  Sex: Male
  Weight: 60 kg

DRUGS (11)
  1. FUROSEMIDE. [Concomitant]
     Active Substance: FUROSEMIDE
     Dosage: 40 MG, QD
  2. PANTOPRAZOLE [Concomitant]
     Active Substance: PANTOPRAZOLE
     Dosage: 40 MG, PRN
  3. XARELTO [Suspect]
     Active Substance: RIVAROXABAN
     Indication: ATRIAL FIBRILLATION
     Dosage: 15 MG, QD
     Route: 048
     Dates: start: 202001
  4. INSULIN [Concomitant]
     Active Substance: INSULIN NOS
  5. CLOPIDOGREL [Concomitant]
     Active Substance: CLOPIDOGREL BISULFATE
     Dosage: DAILY DOSE 75 MG
     Dates: end: 202008
  6. POTASSIUM CITRATE. [Concomitant]
     Active Substance: POTASSIUM CITRATE
     Dosage: 1 DF, QD
  7. TIANEPTINE [Concomitant]
     Active Substance: TIANEPTINE
     Dosage: 12.5 MG, QD
  8. FENOFIBRATE;SIMVASTATIN [Concomitant]
     Dosage: 145/20 MG, QD
  9. LEVOTHYROXINE. [Concomitant]
     Active Substance: LEVOTHYROXINE
  10. BISOPROLOL [Concomitant]
     Active Substance: BISOPROLOL
     Dosage: 1.25 MG, QD
  11. NITRAZEPAM [Concomitant]
     Active Substance: NITRAZEPAM
     Dosage: 5 MG, QD

REACTIONS (10)
  - Angina pectoris [Unknown]
  - Stoma obstruction [Unknown]
  - Cardiac failure [Unknown]
  - Urinary tract infection bacterial [Unknown]
  - Pyrexia [Unknown]
  - Cardiac failure [Unknown]
  - Adenocarcinoma of colon [Unknown]
  - Microcytic anaemia [Unknown]
  - Prostate cancer [Unknown]
  - Urinary retention [Unknown]

NARRATIVE: CASE EVENT DATE: 202004
